FAERS Safety Report 11783758 (Version 1)
Quarter: 2015Q4

REPORT INFORMATION
  Report Type: Spontaneous
  Country: US (occurrence: US)
  Receive Date: 20151127
  Receipt Date: 20151127
  Transmission Date: 20160305
  Serious: No
  Sender: FDA-Public Use
  Company Number: US-009507513-1511USA015266

PATIENT
  Sex: Female

DRUGS (2)
  1. NUVARING [Suspect]
     Active Substance: ETHINYL ESTRADIOL\ETONOGESTREL
     Indication: CONTRACEPTION
     Route: 067
  2. IMPLANON [Suspect]
     Active Substance: ETONOGESTREL
     Dosage: UNK, IN LEFT ARM
     Route: 059
     Dates: start: 2008

REACTIONS (1)
  - Prescribed overdose [Unknown]
